FAERS Safety Report 25545483 (Version 3)
Quarter: 2025Q4

REPORT INFORMATION
  Report Type: Spontaneous
  Country: US (occurrence: US)
  Receive Date: 20250711
  Receipt Date: 20251118
  Transmission Date: 20260117
  Serious: No
  Sender: APELLIS PHARMACEUTICALS
  Company Number: US-APELLIS-2025-APL-0001366

PATIENT

DRUGS (2)
  1. SYFOVRE [Suspect]
     Active Substance: PEGCETACOPLAN
     Indication: Age-related macular degeneration
     Dosage: STARTED 2 MOS PRIOR TO STARTING WITH HCP^S INSTITUTION?FOR RESTART, RESCHEDULED TO 06-AUG-2025
     Dates: end: 20250708
  2. AVASTIN [Concomitant]
     Active Substance: BEVACIZUMAB
     Indication: Age-related macular degeneration
     Dates: start: 20250603

REACTIONS (2)
  - Product dose omission issue [Unknown]
  - Product temperature excursion issue [Unknown]

NARRATIVE: CASE EVENT DATE: 20250628
